FAERS Safety Report 7513252-6 (Version None)
Quarter: 2011Q2

REPORT INFORMATION
  Report Type: 
  Country: None (occurrence: None)
  Receive Date: 20110525
  Receipt Date: 20110525
  Transmission Date: 20111010
  Serious: No
  Sender: FDA-Public Use
  Company Number: None

PATIENT
  Sex: Female
  Weight: 71.6683 kg

DRUGS (1)
  1. SIMPONI [Suspect]
     Indication: ARTHRITIS
     Dates: start: 20100204, end: 20100304

REACTIONS (1)
  - PUSTULAR PSORIASIS [None]
